FAERS Safety Report 7408936-4 (Version None)
Quarter: 2011Q1

REPORT INFORMATION
  Report Type: 
  Country: None (occurrence: None)
  Receive Date: 20110301
  Receipt Date: 20101206
  Transmission Date: 20110831
  Serious: Yes (Disabling, Other)
  Sender: FDA-Public Use
  Company Number: ALA_01192_2010

PATIENT
  Sex: Female
  Weight: 61.6892 kg

DRUGS (15)
  1. RISPERIDONE [Concomitant]
  2. THIOTHIXENE [Concomitant]
  3. ANTIDEPRESSENTS - CYCLIC AND SSRI [Concomitant]
  4. REGLAN [Suspect]
     Indication: IMPAIRED GASTRIC EMPTYING
     Dosage: DF ORAL
     Route: 048
     Dates: start: 20080201, end: 20080701
  5. LORAZEPAM [Concomitant]
  6. OLANZAPINE [Concomitant]
  7. TRICYCLIC ANTIDEPRESSENTS [Concomitant]
  8. SLEEP MEDICATION [Concomitant]
  9. DIPHENHYDRAMINE [Concomitant]
  10. QUETIAPINE [Concomitant]
  11. VENLAFAXINE HCL [Concomitant]
  12. ABILIFY [Concomitant]
  13. WELLBUTRIN [Concomitant]
  14. CLOZAPINE [Concomitant]
  15. LITHIUM [Concomitant]

REACTIONS (2)
  - TARDIVE DYSKINESIA [None]
  - DYSKINESIA [None]
